FAERS Safety Report 10570072 (Version 1)
Quarter: 2014Q4

REPORT INFORMATION
  Report Type: Spontaneous
  Country: US (occurrence: None)
  Receive Date: 20141106
  Receipt Date: 20141106
  Transmission Date: 20150529
  Serious: Yes (Disabling, Congenital Anomaly)
  Sender: FDA-Public Use
  Company Number: None

PATIENT
  Age: 22 Year
  Sex: Female
  Weight: 68.04 kg

DRUGS (1)
  1. MIRALAX [Suspect]
     Active Substance: POLYETHYLENE GLYCOL 3350
     Indication: CONSTIPATION
     Dosage: 8 MONTHS OF PREGANCY

REACTIONS (5)
  - Attention deficit/hyperactivity disorder [None]
  - Bipolar disorder [None]
  - Mental retardation [None]
  - Autism [None]
  - Exposure during pregnancy [None]

NARRATIVE: CASE EVENT DATE: 20021108
